FAERS Safety Report 6160456-3 (Version None)
Quarter: 2009Q2

REPORT INFORMATION
  Report Type: 
  Country: None (occurrence: None)
  Receive Date: 20090416
  Receipt Date: 20090331
  Transmission Date: 20091009
  Serious: Yes (Other)
  Sender: FDA-Public Use
  Company Number: 8044613

PATIENT
  Age: 50 Year
  Sex: Male

DRUGS (1)
  1. METHYLPHENIDATE HCL [Suspect]
     Dosage: 126 MG /D;

REACTIONS (11)
  - AFFECT LABILITY [None]
  - AGITATION [None]
  - ALCOHOLISM [None]
  - DEPRESSION [None]
  - DRUG DEPENDENCE [None]
  - HISTRIONIC PERSONALITY DISORDER [None]
  - INCORRECT DOSE ADMINISTERED [None]
  - NARCISSISTIC PERSONALITY DISORDER [None]
  - PERSONALITY DISORDER [None]
  - TENSION [None]
  - TREATMENT NONCOMPLIANCE [None]
